FAERS Safety Report 25925449 (Version 1)
Quarter: 2025Q4

REPORT INFORMATION
  Report Type: Spontaneous
  Country: US (occurrence: None)
  Receive Date: 20251014
  Receipt Date: 20251014
  Transmission Date: 20260118
  Serious: Yes (Other)
  Sender: FDA-CTU
  Company Number: None

PATIENT
  Age: 83 Year
  Sex: Female
  Weight: 58.5 kg

DRUGS (22)
  1. SULFAMETHOXAZOLE\TRIMETHOPRIM [Suspect]
     Active Substance: SULFAMETHOXAZOLE\TRIMETHOPRIM
     Indication: Urinary tract infection
  2. acetaminophen 325mg tab prn [Concomitant]
  3. senna plus 8.6-50mg tab [Concomitant]
  4. Melatonin rapid release 10mg capsule [Concomitant]
  5. metformin HCL 500 mg tab [Concomitant]
  6. levothyroxine sodium 75 mcg [Concomitant]
  7. TRAZODONE HCL [Concomitant]
     Active Substance: TRAZODONE HYDROCHLORIDE
  8. hydroxyzine hcl 25 mg tab [Concomitant]
  9. ESTRADIOL [Concomitant]
     Active Substance: ESTRADIOL
  10. alprazolam 1 mg tab [Concomitant]
  11. vitamin d3 25 mcg chewable tablet [Concomitant]
  12. acetaminophen ER 650 mg tab, ER [Concomitant]
  13. nitroglycerin 0.4mg sublingual tab PRN [Concomitant]
  14. sodium bicarbonate 650 mg tab PRN [Concomitant]
  15. sodium chloride 1g tab [Concomitant]
  16. calcium 166.75-vitamin d3 166.75 unit - vit C - vit K2- minerals cap [Concomitant]
  17. psyllium husk 0.52 gram cap [Concomitant]
  18. milk of magnesia 400mg/5ml oral suspension [Concomitant]
  19. preservision areds 2 250 mg -90mg-40mg-1mg cap [Concomitant]
  20. NYSTATIN [Concomitant]
     Active Substance: NYSTATIN
  21. calmoseptine topical ointment PRN [Concomitant]
  22. ketoconazole 2% topical cream [Concomitant]

REACTIONS (1)
  - Rash [None]

NARRATIVE: CASE EVENT DATE: 20250721
